FAERS Safety Report 20374066 (Version 1)
Quarter: 2022Q1

REPORT INFORMATION
  Report Type: Report from Study
  Country: US (occurrence: US)
  Receive Date: 20220125
  Receipt Date: 20220125
  Transmission Date: 20220423
  Serious: Yes (Other)
  Sender: FDA-Public Use
  Company Number: US-JAZZ-2021-US-024711

PATIENT
  Age: 31 Year
  Sex: Female

DRUGS (15)
  1. XYREM [Suspect]
     Active Substance: SODIUM OXYBATE
     Indication: Narcolepsy
     Dosage: 2.25 GRAM, BID
     Route: 048
     Dates: start: 201503, end: 201504
  2. XYREM [Suspect]
     Active Substance: SODIUM OXYBATE
     Indication: Cataplexy
     Dosage: DOSE ADJUSTMENTS
     Route: 048
     Dates: start: 201505, end: 202004
  3. XYREM [Suspect]
     Active Substance: SODIUM OXYBATE
     Dosage: 4.5 GRAM, BID
     Dates: start: 202004, end: 202112
  4. ALBUTEROL SULFATE [Concomitant]
     Active Substance: ALBUTEROL SULFATE
     Dosage: 0010
     Dates: start: 20151005
  5. SINGULAIR [Concomitant]
     Active Substance: MONTELUKAST SODIUM
     Dosage: 0000
     Dates: start: 20151005
  6. PROAIR HFA [Concomitant]
     Active Substance: ALBUTEROL SULFATE
     Dosage: 0020
     Dates: start: 20151005
  7. TOPAMAX [Concomitant]
     Active Substance: TOPIRAMATE
     Dosage: 0010
     Dates: start: 20151005
  8. RITALIN [Concomitant]
     Active Substance: METHYLPHENIDATE HYDROCHLORIDE
     Dosage: 0000
     Dates: start: 20151005
  9. ALCOHOL [Concomitant]
     Active Substance: ALCOHOL
     Dosage: 0000
     Dates: start: 20151015
  10. IBUPROFEN [Concomitant]
     Active Substance: IBUPROFEN
     Dosage: 0000
     Dates: start: 20160317
  11. PROVIGIL [Concomitant]
     Active Substance: MODAFINIL
     Dosage: 0000
     Dates: start: 20160121
  12. NUVARING [Concomitant]
     Active Substance: ETHINYL ESTRADIOL\ETONOGESTREL
     Dosage: 0000
     Dates: start: 20160417
  13. RIZATRIPTAN [Concomitant]
     Active Substance: RIZATRIPTAN
     Dosage: 0000
     Dates: start: 20160328
  14. TOPIRAMATE [Concomitant]
     Active Substance: TOPIRAMATE
     Dosage: 0000
     Dates: start: 20200421
  15. SUMATRIPTAN SUCCINATE [Concomitant]
     Active Substance: SUMATRIPTAN SUCCINATE
     Dosage: 0000
     Dates: start: 20191018

REACTIONS (1)
  - Knee operation [Unknown]

NARRATIVE: CASE EVENT DATE: 20210801
